FAERS Safety Report 7327318-7 (Version None)
Quarter: 2011Q1

REPORT INFORMATION
  Report Type: 
  Country: None (occurrence: None)
  Receive Date: 20110302
  Receipt Date: 20110225
  Transmission Date: 20110831
  Serious: Yes (Hospitalization, Other)
  Sender: FDA-Public Use
  Company Number: US-AMGEN-QUU420902

PATIENT
  Age: 79 Year
  Sex: Male
  Weight: 68.6 kg

DRUGS (14)
  1. PREDNISONE TAB [Concomitant]
     Dosage: UNK UNK, UNK
     Route: 048
     Dates: start: 20090330
  2. METOPROLOL TARTRATE [Concomitant]
     Dosage: 80 MG, QD
     Route: 048
  3. TOCOPHEROL CONCENTRATE CAP [Concomitant]
  4. NPLATE [Suspect]
     Indication: IDIOPATHIC THROMBOCYTOPENIC PURPURA
     Dosage: 80 A?G/KG, QWK
     Route: 058
     Dates: start: 20090728, end: 20091124
  5. NPLATE [Suspect]
     Dates: start: 20090728, end: 20091124
  6. WARFARIN SODIUM [Concomitant]
  7. RETINOL [Concomitant]
  8. IRON [Concomitant]
     Dosage: UNK UNK, BID
     Route: 048
  9. ASCORBIC ACID [Concomitant]
  10. CYANOCOBALAMIN [Concomitant]
     Dosage: UNK UNK, UNK
     Route: 030
  11. CELEXA [Concomitant]
     Dosage: 20 MG, QD
     Route: 048
  12. ZOLPIDEM TARTRATE [Concomitant]
     Dosage: 5 MG, QD
     Route: 048
  13. OMEPRAZOLE [Concomitant]
     Dosage: 20 MG, QD
  14. ASPIRIN [Concomitant]
     Dosage: 81 MG, QD

REACTIONS (16)
  - ABDOMINAL WALL HAEMATOMA [None]
  - HERNIA REPAIR [None]
  - THROMBOCYTOPENIA [None]
  - DISSEMINATED INTRAVASCULAR COAGULATION [None]
  - SKIN CANCER [None]
  - HYPOTENSION [None]
  - ACUTE RESPIRATORY FAILURE [None]
  - RENAL TUBULAR NECROSIS [None]
  - OPERATIVE HAEMORRHAGE [None]
  - DIEULAFOY'S VASCULAR MALFORMATION [None]
  - ANAEMIA [None]
  - PEPTIC ULCER [None]
  - RENAL FAILURE ACUTE [None]
  - REFRACTORY ANAEMIA [None]
  - MYELODYSPLASTIC SYNDROME [None]
  - PANCYTOPENIA [None]
